FAERS Safety Report 5339210-8 (Version None)
Quarter: 2007Q2

REPORT INFORMATION
  Report Type: 
  Country: None (occurrence: None)
  Receive Date: 20070330
  Receipt Date: 20060525
  Transmission Date: 20071010
  Serious: Yes (Hospitalization)
  Sender: FDA-Public Use
  Company Number: 2006UW08693

PATIENT
  Age: 75 Year
  Sex: Male
  Weight: 84.369 kg

DRUGS (5)
  1. ZESTRIL [Suspect]
     Indication: HYPERTENSION
     Dosage: 20 MG PO
     Route: 048
     Dates: start: 19990101
  2. TOPROL-XL [Concomitant]
  3. FLOMAX [Concomitant]
  4. SYNTHROID [Concomitant]
  5. ZOCOR [Concomitant]

REACTIONS (1)
  - PANCREATITIS [None]
